FAERS Safety Report 15151952 (Version 2)
Quarter: 2018Q3

REPORT INFORMATION
  Report Type: Spontaneous
  Country: DE (occurrence: DE)
  Receive Date: 20180717
  Receipt Date: 20180725
  Transmission Date: 20181010
  Serious: Yes (Other)
  Sender: FDA-Public Use
  Company Number: DE-TEVA-2018-DE-925844

PATIENT
  Age: 81 Year
  Sex: Male
  Weight: 81 kg

DRUGS (2)
  1. CLOPIDOGREL RATIOPHARM 75MG [Suspect]
     Active Substance: CLOPIDOGREL BISULFATE
     Indication: ANTICOAGULANT THERAPY
     Route: 048
     Dates: start: 201508
  2. CLOPIDOGREL [Suspect]
     Active Substance: CLOPIDOGREL BISULFATE
     Indication: ANTICOAGULANT THERAPY
     Route: 065

REACTIONS (13)
  - Cardiac arrest [Unknown]
  - Dyspepsia [Unknown]
  - Reaction to excipient [Unknown]
  - Movement disorder [Unknown]
  - Fatigue [Unknown]
  - Poor quality sleep [Unknown]
  - Pruritus [Unknown]
  - Sleep paralysis [Recovered/Resolved]
  - Dizziness [Unknown]
  - Back pain [Unknown]
  - Cardiovascular disorder [Unknown]
  - Headache [Unknown]
  - Blood pressure decreased [Unknown]
